FAERS Safety Report 23563549 (Version 1)
Quarter: 2024Q1

REPORT INFORMATION
  Report Type: Spontaneous
  Country: SE (occurrence: SE)
  Receive Date: 20240226
  Receipt Date: 20240226
  Transmission Date: 20240410
  Serious: Yes (Disabling)
  Sender: FDA-Public Use
  Company Number: None

PATIENT
  Age: 69 Year
  Sex: Male
  Weight: 81 kg

DRUGS (3)
  1. HYRIMOZ [Suspect]
     Active Substance: ADALIMUMAB-ADAZ
     Indication: Psoriatic arthropathy
     Dosage: 40 MG VARANNAN VECKA DOS: SENARE DOS
     Route: 058
     Dates: start: 20221220, end: 20231103
  2. ALFUZOSIN ORION [Concomitant]
     Indication: Product used for unknown indication
     Dosage: 1X1
     Route: 048
     Dates: start: 20201019
  3. FINASTERID SANDOZ [Concomitant]
     Indication: Product used for unknown indication
     Dosage: 1X1
     Route: 048
     Dates: start: 20210921

REACTIONS (2)
  - Visual impairment [Not Recovered/Not Resolved]
  - Optic neuritis [Not Recovered/Not Resolved]

NARRATIVE: CASE EVENT DATE: 20230101
